FAERS Safety Report 9120449 (Version 1)
Quarter: 2013Q1

REPORT INFORMATION
  Report Type: Spontaneous
  Country: US (occurrence: US)
  Receive Date: 20130226
  Receipt Date: 20130226
  Transmission Date: 20140127
  Serious: Yes (Other)
  Sender: FDA-Public Use
  Company Number: US-ROXANE LABORATORIES, INC.-2013-RO-00276RO

PATIENT
  Age: 72 Week
  Sex: Female

DRUGS (2)
  1. CYCLOPHOSPHAMIDE TABLETS USP [Suspect]
     Indication: BREAST CANCER STAGE III
  2. DOCETAXEL [Suspect]
     Indication: BREAST CANCER STAGE III

REACTIONS (6)
  - Interstitial lung disease [Not Recovered/Not Resolved]
  - Pulmonary fibrosis [Unknown]
  - Pneumothorax [Unknown]
  - Fatigue [Unknown]
  - Nausea [Unknown]
  - Vomiting [Unknown]
